FAERS Safety Report 23277264 (Version 2)
Quarter: 2024Q3

REPORT INFORMATION
  Report Type: Spontaneous
  Country: US (occurrence: US)
  Receive Date: 20231208
  Receipt Date: 20240815
  Transmission Date: 20241016
  Serious: Yes (Other)
  Sender: BIOMARIN
  Company Number: US-BIOMARINAP-US-2023-154426

PATIENT

DRUGS (3)
  1. PALYNZIQ [Suspect]
     Active Substance: PEGVALIASE-PQPZ
     Indication: Phenylketonuria
     Dosage: UNK UNK, QD
     Route: 058
     Dates: end: 20240502
  2. PALYNZIQ [Suspect]
     Active Substance: PEGVALIASE-PQPZ
     Dosage: UNK
     Route: 058
     Dates: start: 20230706
  3. PEPCID AC [Concomitant]
     Active Substance: FAMOTIDINE
     Indication: Premedication

REACTIONS (14)
  - Chest pain [Recovering/Resolving]
  - Headache [Recovering/Resolving]
  - Heart rate irregular [Recovering/Resolving]
  - Palpitations [Recovering/Resolving]
  - Nasal congestion [Recovering/Resolving]
  - Dysphagia [Recovering/Resolving]
  - Upper respiratory tract infection [Not Recovered/Not Resolved]
  - Injection site reaction [Not Recovered/Not Resolved]
  - Nausea [Not Recovered/Not Resolved]
  - Diarrhoea [Not Recovered/Not Resolved]
  - Cough [Not Recovered/Not Resolved]
  - Injection site rash [Not Recovered/Not Resolved]
  - Arthralgia [Not Recovered/Not Resolved]
  - Joint swelling [Not Recovered/Not Resolved]

NARRATIVE: CASE EVENT DATE: 20231206
